FAERS Safety Report 8549157-1 (Version None)
Quarter: 2012Q3

REPORT INFORMATION
  Report Type: 
  Country: None (occurrence: None)
  Receive Date: 20120730
  Receipt Date: 20120723
  Transmission Date: 20120928
  Serious: Yes (Other)
  Sender: FDA-Public Use
  Company Number: BR-PFIZER INC-2012178902

PATIENT
  Sex: Female

DRUGS (1)
  1. VIAGRA [Suspect]
     Route: 048

REACTIONS (6)
  - OFF LABEL USE [None]
  - CHEST PAIN [None]
  - DIZZINESS [None]
  - ASTHENIA [None]
  - CONDITION AGGRAVATED [None]
  - ACTIVITIES OF DAILY LIVING IMPAIRED [None]
